FAERS Safety Report 9916684 (Version 1)
Quarter: 2014Q1

REPORT INFORMATION
  Report Type: Spontaneous
  Country: US (occurrence: US)
  Receive Date: 20140221
  Receipt Date: 20140221
  Transmission Date: 20141002
  Serious: Yes (Hospitalization, Other)
  Sender: FDA-Public Use
  Company Number: US-UCBSA-112516

PATIENT
  Age: 61 Year
  Sex: 0

DRUGS (1)
  1. CIMZIA [Suspect]
     Indication: RHEUMATOID ARTHRITIS
     Dates: start: 201310

REACTIONS (2)
  - Bronchopneumonia [Not Recovered/Not Resolved]
  - Bronchitis [Not Recovered/Not Resolved]
